FAERS Safety Report 24105072 (Version 1)
Quarter: 2024Q3

REPORT INFORMATION
  Report Type: Spontaneous
  Country: DZ (occurrence: DZ)
  Receive Date: 20240717
  Receipt Date: 20240717
  Transmission Date: 20241017
  Serious: Yes (Death, Other)
  Sender: SANOFI AVENTIS
  Company Number: FR-SANOFI-01894382

PATIENT
  Sex: Female

DRUGS (5)
  1. LOVENOX [Suspect]
     Active Substance: ENOXAPARIN SODIUM
     Dosage: 0.4 UNK, QD
  2. PIROXICAM [Suspect]
     Active Substance: PIROXICAM
     Dosage: 1 DF QD
  3. TRIAMCINOLONE ACETONIDE [Suspect]
     Active Substance: TRIAMCINOLONE ACETONIDE
     Dosage: 1 DF QD FOR 8 DAYS
  4. ACETAMINOPHEN [Suspect]
     Active Substance: ACETAMINOPHEN
     Dosage: 500 MG QD
  5. AMOXICILLIN [Suspect]
     Active Substance: AMOXICILLIN
     Dosage: ONE INJECTION PER DAY FOR 08 DAYS

REACTIONS (1)
  - Death [Fatal]
